FAERS Safety Report 4548245-4 (Version None)
Quarter: 2004Q4

REPORT INFORMATION
  Report Type: 
  Country: None (occurrence: None)
  Receive Date: 20041220
  Receipt Date: 20040503
  Transmission Date: 20050328
  Serious: Yes (Hospitalization)
  Sender: FDA-Public Use
  Company Number: US_980301077

PATIENT
  Age: 61 Year
  Sex: Female
  Weight: 105 kg

DRUGS (12)
  1. HUMALOG [Suspect]
     Indication: DIABETES MELLITUS
     Dosage: 28U/DAY
     Dates: start: 19870101
  2. HUMULIN N [Suspect]
     Indication: DIABETES MELLITUS
     Dates: start: 20040401
  3. NOVOLIN N [Concomitant]
  4. ZESTRIL [Concomitant]
  5. NORVASC [Concomitant]
  6. LIPITOR [Concomitant]
  7. REZULIN [Concomitant]
  8. ASPIRIN [Concomitant]
  9. ZYRTEC [Concomitant]
  10. ACTOS [Concomitant]
  11. AVANDIA [Concomitant]
  12. FOSAMAX [Concomitant]

REACTIONS (16)
  - BLOOD GLUCOSE INCREASED [None]
  - BLOOD PRESSURE DECREASED [None]
  - BODY HEIGHT DECREASED [None]
  - CARDIAC FAILURE CONGESTIVE [None]
  - DIFFICULTY IN WALKING [None]
  - DYSSTASIA [None]
  - FALL [None]
  - FEMORAL ARTERY OCCLUSION [None]
  - GASTROINTESTINAL DISORDER [None]
  - IMPAIRED GASTRIC EMPTYING [None]
  - MEDICATION ERROR [None]
  - PERICARDIAL EFFUSION [None]
  - PERIPHERAL VASCULAR DISORDER [None]
  - SPINAL COMPRESSION FRACTURE [None]
  - UPPER LIMB FRACTURE [None]
  - WEIGHT INCREASED [None]
